FAERS Safety Report 7077686-9 (Version None)
Quarter: 2010Q4

REPORT INFORMATION
  Report Type: 
  Country: None (occurrence: None)
  Receive Date: 20101101
  Receipt Date: 20101021
  Transmission Date: 20110411
  Serious: Yes (Death)
  Sender: FDA-Public Use
  Company Number: US-CELGENEUS-163-21880-10102200

PATIENT
  Sex: Male
  Weight: 99.1 kg

DRUGS (24)
  1. REVLIMID [Suspect]
     Indication: MULTIPLE MYELOMA
     Route: 048
     Dates: start: 20100501, end: 20100101
  2. REVLIMID [Suspect]
     Route: 048
     Dates: start: 20100701, end: 20100101
  3. THALOMID [Suspect]
     Indication: MULTIPLE MYELOMA
     Route: 048
     Dates: start: 20100501, end: 20100101
  4. THALOMID [Suspect]
     Route: 048
     Dates: start: 20100701, end: 20100101
  5. DEXAMETHASONE [Suspect]
     Indication: MULTIPLE MYELOMA
     Route: 065
     Dates: start: 20100501, end: 20100101
  6. RED BLOOD CELLS [Concomitant]
     Dosage: 2 UNITS
     Route: 051
     Dates: start: 20100615, end: 20100615
  7. OXYGEN [Concomitant]
     Route: 055
     Dates: start: 20100601
  8. COUMADIN [Concomitant]
     Indication: PROPHYLAXIS
     Route: 065
  9. COUMADIN [Concomitant]
     Route: 065
  10. COUMADIN [Concomitant]
     Route: 065
  11. LASIX [Concomitant]
     Route: 051
     Dates: start: 20100601
  12. LANTUS [Concomitant]
     Dosage: SLIDING SCALE
     Route: 065
  13. BYSTOLIC [Concomitant]
     Route: 065
  14. CALCIUM [Concomitant]
     Route: 065
  15. CARDIZEM [Concomitant]
     Route: 065
  16. CYMBALTA [Concomitant]
     Route: 065
  17. FEXOFENADINE HCL [Concomitant]
     Route: 065
  18. FOSAMAX [Concomitant]
     Route: 065
  19. NOVOLOG [Concomitant]
     Dosage: SLIDING SCALE
     Route: 065
  20. ASCORBIC ACID [Concomitant]
     Route: 065
  21. TRILIPIX [Concomitant]
     Route: 065
  22. MIRALAX [Concomitant]
     Route: 065
  23. ASPIRIN [Concomitant]
     Route: 065
  24. PROCRIT [Concomitant]
     Route: 065

REACTIONS (1)
  - CARDIAC ARREST [None]
